FAERS Safety Report 24347602 (Version 1)
Quarter: 2024Q3

REPORT INFORMATION
  Report Type: Spontaneous
  Country: PE (occurrence: PE)
  Receive Date: 20240922
  Receipt Date: 20240922
  Transmission Date: 20241017
  Serious: Yes (Hospitalization)
  Sender: ROCHE
  Company Number: PE-BoehringerIngelheim-2024-BI-049624

PATIENT
  Age: 71 Year
  Sex: Female

DRUGS (1)
  1. ALTEPLASE [Suspect]
     Active Substance: ALTEPLASE
     Indication: Cerebrovascular accident
     Dosage: 54 MG TOTAL DOSE
     Route: 065
     Dates: start: 20240826, end: 20240826

REACTIONS (2)
  - Subarachnoid haemorrhage [Unknown]
  - Pneumonia [Not Recovered/Not Resolved]

NARRATIVE: CASE EVENT DATE: 20240826
